FAERS Safety Report 20005643 (Version 1)
Quarter: 2021Q4

REPORT INFORMATION
  Report Type: Spontaneous
  Country: US (occurrence: US)
  Receive Date: 20211028
  Receipt Date: 20211028
  Transmission Date: 20220303
  Serious: Yes (Hospitalization)
  Sender: FDA-Public Use
  Company Number: None

PATIENT
  Age: 56 Year
  Sex: Male
  Weight: 81.3 kg

DRUGS (5)
  1. FLUOROURACIL [Suspect]
     Active Substance: FLUOROURACIL
     Indication: Abdominal pain
     Dates: end: 20211010
  2. FLUOROURACIL [Suspect]
     Active Substance: FLUOROURACIL
     Indication: Pyrexia
  3. CAMPTOSAR [Suspect]
     Active Substance: IRINOTECAN HYDROCHLORIDE
     Dates: end: 20211008
  4. LEUCOVORIN CALCIUM [Suspect]
     Active Substance: LEUCOVORIN CALCIUM
     Dates: end: 20211008
  5. ELOXATIN [Suspect]
     Active Substance: OXALIPLATIN
     Dates: end: 20211008

REACTIONS (5)
  - Abdominal pain [None]
  - Pyrexia [None]
  - Blood potassium decreased [None]
  - Blood magnesium decreased [None]
  - Neutrophil count decreased [None]

NARRATIVE: CASE EVENT DATE: 20211020
